FAERS Safety Report 10179712 (Version 1)
Quarter: 2014Q2

REPORT INFORMATION
  Report Type: Spontaneous
  Country: US (occurrence: None)
  Receive Date: 20140515
  Receipt Date: 20140515
  Transmission Date: 20141212
  Serious: Yes (Hospitalization, Other)
  Sender: FDA-Public Use
  Company Number: FK201401719

PATIENT
  Age: 20 Year
  Sex: Female

DRUGS (2)
  1. BUPIVACAINE [Suspect]
     Indication: NERVE BLOCK
  2. LIPID EMULSION [Suspect]
     Indication: TOXICITY TO VARIOUS AGENTS
     Dosage: 2 ML/KG, INTRAVENOUS BOLUS?
     Route: 040

REACTIONS (6)
  - Convulsion [None]
  - Tachycardia [None]
  - Abdominal pain upper [None]
  - Nausea [None]
  - Pancreatitis [None]
  - Toxicity to various agents [None]
